FAERS Safety Report 11468196 (Version 1)
Quarter: 2015Q3

REPORT INFORMATION
  Report Type: Spontaneous
  Country: US (occurrence: None)
  Receive Date: 20150904
  Receipt Date: 20150904
  Transmission Date: 20151125
  Serious: Yes (Hospitalization)
  Sender: FDA-Public Use
  Company Number: None

PATIENT
  Age: 55 Year
  Sex: Female
  Weight: 58.5 kg

DRUGS (2)
  1. EXPAREL [Suspect]
     Active Substance: BUPIVACAINE
     Indication: LOCAL ANAESTHESIA
     Dosage: ONE TIME DOSE
     Route: 058
  2. EXPAREL [Suspect]
     Active Substance: BUPIVACAINE
     Indication: HAEMORRHOID OPERATION
     Dosage: ONE TIME DOSE
     Route: 058

REACTIONS (1)
  - Seizure [None]

NARRATIVE: CASE EVENT DATE: 20150902
